FAERS Safety Report 20099948 (Version 1)
Quarter: 2021Q4

REPORT INFORMATION
  Report Type: Other
  Country: JP (occurrence: JP)
  Receive Date: 20211123
  Receipt Date: 20211123
  Transmission Date: 20220303
  Serious: Yes (Other)
  Sender: FDA-Public Use
  Company Number: JP-CHUGAI-2021027516AA

PATIENT
  Age: 19 Year
  Sex: Male

DRUGS (6)
  1. ACTEMRA [Suspect]
     Active Substance: TOCILIZUMAB
     Indication: Cytokine release syndrome
     Dosage: MOST RECENT DOSE: ON 23/NOV/2020
     Route: 065
     Dates: start: 20201122
  2. KYMRIAH [Suspect]
     Active Substance: TISAGENLECLEUCEL
     Indication: Acute lymphocytic leukaemia recurrent
     Route: 041
     Dates: start: 20201122
  3. METHYLPREDNISOLONE [Concomitant]
     Active Substance: METHYLPREDNISOLONE
     Route: 065
  4. VINCRISTINE SULFATE [Concomitant]
     Active Substance: VINCRISTINE SULFATE
     Route: 065
  5. DEXAMETHASONE [Concomitant]
     Active Substance: DEXAMETHASONE
     Route: 065
  6. CLOFARABINE [Concomitant]
     Active Substance: CLOFARABINE
     Route: 065

REACTIONS (4)
  - Acute kidney injury [Recovered/Resolved]
  - Disseminated intravascular coagulation [Recovered/Resolved]
  - Myelosuppression [Recovered/Resolved]
  - Tumour lysis syndrome [Recovered/Resolved]
